FAERS Safety Report 7637798-5 (Version None)
Quarter: 2011Q3

REPORT INFORMATION
  Report Type: 
  Country: None (occurrence: None)
  Receive Date: 20110720
  Receipt Date: 20110301
  Transmission Date: 20111222
  Serious: Yes (Other)
  Sender: FDA-Public Use
  Company Number: GAM-010-11-AU

PATIENT
  Age: 59 Year
  Sex: Male

DRUGS (3)
  1. ENOXAPARIN [Concomitant]
  2. PREDNISOLONE [Concomitant]
  3. OCTAGAM [Suspect]
     Indication: TRANSPLANT REJECTION
     Dosage: 90 G - 1 X 1 / CYCLICAL,  INTRAVENOUS (NOT OTHERWISE SPECIFIED)
     Route: 042

REACTIONS (1)
  - ARTERIOVENOUS FISTULA THROMBOSIS [None]
